FAERS Safety Report 10268859 (Version 1)
Quarter: 2014Q2

REPORT INFORMATION
  Report Type: Spontaneous
  Country: FR (occurrence: FR)
  Receive Date: 20140630
  Receipt Date: 20140630
  Transmission Date: 20141212
  Serious: Yes (Other)
  Sender: FDA-Public Use
  Company Number: FR-GLAXOSMITHKLINE-B1008227A

PATIENT
  Age: 62 Year
  Sex: Female

DRUGS (1)
  1. CEFUROXIME [Suspect]
     Indication: CATARACT
     Dosage: 1MG SINGLE DOSE
     Route: 042

REACTIONS (3)
  - Macular oedema [Recovered/Resolved]
  - Retinal toxicity [Unknown]
  - Retinal detachment [Unknown]
